FAERS Safety Report 26177816 (Version 1)
Quarter: 2025Q4

REPORT INFORMATION
  Report Type: Spontaneous
  Country: EU (occurrence: EU)
  Receive Date: 20251219
  Receipt Date: 20251219
  Transmission Date: 20260117
  Serious: Yes (Hospitalization, Other)
  Sender: AUROBINDO
  Company Number: EU-MINISAL02-1070927

PATIENT
  Age: 82 Year
  Sex: Female
  Weight: 60 kg

DRUGS (7)
  1. QUETIAPINE [Suspect]
     Active Substance: QUETIAPINE
     Indication: Behaviour disorder
     Dosage: 25 MILLIGRAM, TWO TIMES A DAY
     Route: 061
  2. AMLODIPINE [Suspect]
     Active Substance: AMLODIPINE BESYLATE
     Indication: Hypertension
     Dosage: 5 MILLIGRAM, ONCE A DAY
     Route: 061
  3. PAROXETINE [Suspect]
     Active Substance: PAROXETINE
     Indication: Depression
     Dosage: 20 MILLIGRAM, ONCE A DAY
     Route: 061
  4. LORAZEPAM [Suspect]
     Active Substance: LORAZEPAM
     Indication: Mixed anxiety and depressive disorder
     Dosage: 1 MILLIGRAM, ONCE A DAY
     Route: 061
  5. FUROSEMIDE [Concomitant]
     Active Substance: FUROSEMIDE
     Indication: Product used for unknown indication
     Dosage: 25 MILLIGRAM, ONCE A DAY
     Route: 065
  6. DOXAZOSIN [Concomitant]
     Active Substance: DOXAZOSIN MESYLATE
     Indication: Product used for unknown indication
     Dosage: 4 MILLIGRAM, TWO TIMES A DAY
     Route: 065
  7. CANRENONE [Concomitant]
     Active Substance: CANRENONE
     Indication: Product used for unknown indication
     Dosage: 50 MILLIGRAM, ONCE A DAY
     Route: 065

REACTIONS (1)
  - Delirium [Recovering/Resolving]

NARRATIVE: CASE EVENT DATE: 20251001
